FAERS Safety Report 14768751 (Version 2)
Quarter: 2018Q2

REPORT INFORMATION
  Report Type: Spontaneous
  Country: JP (occurrence: JP)
  Receive Date: 20180417
  Receipt Date: 20180427
  Transmission Date: 20180711
  Serious: Yes (Other)
  Sender: FDA-Public Use
  Company Number: JP-JNJFOC-20180416858

PATIENT
  Age: 75 Year
  Sex: Male
  Weight: 62 kg

DRUGS (2)
  1. ITRIZOLE [Suspect]
     Active Substance: ITRACONAZOLE
     Indication: DERMATOPHYTOSIS OF NAIL
     Route: 048
  2. ITRIZOLE [Suspect]
     Active Substance: ITRACONAZOLE
     Indication: DERMATOPHYTOSIS OF NAIL
     Route: 048

REACTIONS (2)
  - Haemorrhage [Recovering/Resolving]
  - Medication error [Unknown]

NARRATIVE: CASE EVENT DATE: 20180409
